FAERS Safety Report 12722355 (Version 1)
Quarter: 2016Q3

REPORT INFORMATION
  Report Type: Spontaneous
  Country: US (occurrence: US)
  Receive Date: 20160907
  Receipt Date: 20160907
  Transmission Date: 20161109
  Serious: No
  Sender: FDA-Public Use
  Company Number: US-AMNEAL PHARMACEUTICALS-2016AMN00430

PATIENT
  Sex: Female
  Weight: 70.3 kg

DRUGS (3)
  1. CHEWABLE CALCIUM CITRATE [Concomitant]
  2. LIDOCAINE. [Suspect]
     Active Substance: LIDOCAINE
     Indication: TENDON PAIN
     Dosage: 5 %, 3X/DAY
     Route: 061
     Dates: start: 20160720, end: 20160723
  3. CHEWABLE MULTIVIATMIN [Concomitant]

REACTIONS (1)
  - Drug ineffective [Not Recovered/Not Resolved]
